FAERS Safety Report 4606098-X (Version None)
Quarter: 2005Q1

REPORT INFORMATION
  Report Type: 
  Country: None (occurrence: None)
  Receive Date: 20050309
  Receipt Date: 20050218
  Transmission Date: 20050727
  Serious: Yes (Hospitalization)
  Sender: FDA-Public Use
  Company Number: USA020414151

PATIENT
  Age: 8 Year
  Sex: Male
  Weight: 33 kg

DRUGS (1)
  1. HUMATROPE [Suspect]
     Indication: DWARFISM
     Dosage: 1.8 MG DAY
     Dates: start: 20020101

REACTIONS (19)
  - ABNORMAL FAECES [None]
  - COLITIS ULCERATIVE [None]
  - DEHYDRATION [None]
  - DIARRHOEA [None]
  - HAIR DISORDER [None]
  - HEADACHE [None]
  - INJECTION SITE HAEMORRHAGE [None]
  - INJECTION SITE MASS [None]
  - MEDICAL DEVICE COMPLICATION [None]
  - MEDICATION ERROR [None]
  - MIOSIS [None]
  - PAIN [None]
  - PALLOR [None]
  - PHARMACEUTICAL PRODUCT COMPLAINT [None]
  - RASH PAPULAR [None]
  - SKIN ODOUR ABNORMAL [None]
  - SWELLING FACE [None]
  - UNDERWEIGHT [None]
  - URTICARIA [None]
